FAERS Safety Report 24259613 (Version 1)
Quarter: 2024Q3

REPORT INFORMATION
  Report Type: Report from Study
  Country: US (occurrence: US)
  Receive Date: 20240828
  Receipt Date: 20240828
  Transmission Date: 20241017
  Serious: Yes (Hospitalization)
  Sender: PHARMING GROUP
  Company Number: US-PHARMING-PHAUS2024000655

PATIENT

DRUGS (1)
  1. RUCONEST [Suspect]
     Active Substance: CONESTAT ALFA
     Indication: Hereditary angioedema with normal C1 esterase inhibitor
     Dosage: 4200 IU, AS NEEDED
     Route: 042

REACTIONS (2)
  - Tooth infection [Unknown]
  - Tracheostomy [Unknown]

NARRATIVE: CASE EVENT DATE: 20240101
